FAERS Safety Report 14977993 (Version 2)
Quarter: 2019Q2

REPORT INFORMATION
  Report Type: Spontaneous
  Country: US (occurrence: US)
  Receive Date: 20180606
  Receipt Date: 20190401
  Transmission Date: 20190711
  Serious: Yes (Other)
  Sender: FDA-Public Use
  Company Number: US-PFIZER INC-2018208706

PATIENT
  Age: 59 Year
  Sex: Female

DRUGS (2)
  1. XANAX [Suspect]
     Active Substance: ALPRAZOLAM
     Indication: ANXIETY
     Dosage: UNK, 1X/DAY [2 AND HALF TABLETS BY MOUTH AT NIGHT]
     Route: 048
  2. XANAX [Suspect]
     Active Substance: ALPRAZOLAM
     Indication: SLEEP DISORDER
     Dosage: 2 MG, UNK

REACTIONS (7)
  - Ear infection fungal [Recovered/Resolved]
  - Ear infection bacterial [Recovered/Resolved]
  - Ear pain [Unknown]
  - Drug ineffective [Not Recovered/Not Resolved]
  - Product dispensing error [Unknown]
  - Central nervous system lesion [Unknown]
  - Poor quality product administered [Unknown]

NARRATIVE: CASE EVENT DATE: 2018
